FAERS Safety Report 19114384 (Version 2)
Quarter: 2021Q2

REPORT INFORMATION
  Report Type: Spontaneous
  Country: DE (occurrence: DE)
  Receive Date: 20210408
  Receipt Date: 20210511
  Transmission Date: 20210717
  Serious: Yes (Other)
  Sender: FDA-Public Use
  Company Number: DE-US-PROVELL PHARMACEUTICALS LLC-9229235

PATIENT
  Sex: Female

DRUGS (1)
  1. EUTHYROX [Suspect]
     Active Substance: LEVOTHYROXINE SODIUM
     Indication: PRODUCT USED FOR UNKNOWN INDICATION
     Dosage: 88 (UNSPECIFIED UNITS)

REACTIONS (12)
  - Pruritus [Unknown]
  - Dry eye [Unknown]
  - Cough [Not Recovered/Not Resolved]
  - Herpes zoster [Unknown]
  - Eye swelling [Unknown]
  - Pharyngeal swelling [Unknown]
  - Choking [Unknown]
  - Dysphagia [Unknown]
  - Autoimmune disorder [Unknown]
  - Eyelid margin crusting [Unknown]
  - Swelling of eyelid [Unknown]
  - Eczema [Unknown]

NARRATIVE: CASE EVENT DATE: 2020
